FAERS Safety Report 12340687 (Version 1)
Quarter: 2016Q2

REPORT INFORMATION
  Report Type: Spontaneous
  Country: US (occurrence: None)
  Receive Date: 20160505
  Receipt Date: 20160505
  Transmission Date: 20160815
  Serious: Yes (Disabling, Other)
  Sender: FDA-Public Use
  Company Number: None

PATIENT
  Age: 18 Year
  Sex: Female
  Weight: 63.5 kg

DRUGS (2)
  1. METRONIDAZOLE 500 MG [Suspect]
     Active Substance: METRONIDAZOLE
     Indication: VAGINITIS BACTERIAL
     Route: 048
     Dates: start: 20160411, end: 20160412
  2. LOMEDIA [Concomitant]

REACTIONS (6)
  - Dizziness [None]
  - Dyspnoea [None]
  - Nausea [None]
  - Headache [None]
  - Malaise [None]
  - Urticaria [None]

NARRATIVE: CASE EVENT DATE: 20160411
